FAERS Safety Report 11563476 (Version 3)
Quarter: 2016Q1

REPORT INFORMATION
  Report Type: Spontaneous
  Country: US (occurrence: US)
  Receive Date: 20150928
  Receipt Date: 20160316
  Transmission Date: 20160525
  Serious: Yes (Other)
  Sender: FDA-Public Use
  Company Number: US-SA-2015SA144990

PATIENT
  Age: 51 Year
  Sex: Male

DRUGS (7)
  1. TOUJEO [Suspect]
     Active Substance: INSULIN GLARGINE
     Indication: DIABETES MELLITUS
     Dosage: DOSE:63 UNIT(S)
     Route: 065
     Dates: start: 201506
  2. APIDRA [Suspect]
     Active Substance: INSULIN GLULISINE
     Dosage: DOSE:20 UNIT(S)
     Route: 065
     Dates: start: 201509
  3. ALLEGRA ALLERGY [Suspect]
     Active Substance: FEXOFENADINE HYDROCHLORIDE
     Indication: SEASONAL ALLERGY
     Route: 065
  4. SOLOSTAR [Concomitant]
     Active Substance: DEVICE
     Indication: DIABETES MELLITUS
     Dates: start: 201506
  5. TOUJEO [Suspect]
     Active Substance: INSULIN GLARGINE
     Indication: DIABETES MELLITUS
     Dosage: DOSE:70 UNIT(S)
     Route: 065
     Dates: start: 2015
  6. APIDRA [Suspect]
     Active Substance: INSULIN GLULISINE
     Dosage: DOSE:15 UNIT(S)
     Route: 065
     Dates: start: 201506
  7. LANTUS [Suspect]
     Active Substance: INSULIN GLARGINE
     Dosage: DOSE:70 UNIT(S)
     Route: 065

REACTIONS (6)
  - Blood glucose decreased [Unknown]
  - Pulmonary congestion [Unknown]
  - Cough [Not Recovered/Not Resolved]
  - Blood glucose increased [Unknown]
  - Nervousness [Unknown]
  - Glycosylated haemoglobin increased [Unknown]

NARRATIVE: CASE EVENT DATE: 201506
